FAERS Safety Report 4570216-2 (Version None)
Quarter: 2005Q1

REPORT INFORMATION
  Report Type: 
  Country: None (occurrence: None)
  Receive Date: 20050202
  Receipt Date: 20050120
  Transmission Date: 20050727
  Serious: Yes (Hospitalization, Disabling)
  Sender: FDA-Public Use
  Company Number: 2005015920

PATIENT
  Age: 42 Year
  Sex: Female
  Weight: 50.5 kg

DRUGS (13)
  1. ALDACTONE [Suspect]
     Indication: HYPERTENSION
     Dosage: 50 MG (DAILY), ORAL
     Route: 048
     Dates: start: 20040715, end: 20040826
  2. DONEPEZIL HCL [Suspect]
     Indication: DEMENTIA ALZHEIMER'S TYPE
     Dosage: 5 MG (5 MG, DAILY), ORAL
     Route: 048
     Dates: start: 20020401, end: 20040826
  3. MINIPRESS [Suspect]
     Indication: HYPERTENSION
     Dosage: 2 MG (1 MG, BID), ORAL
     Route: 048
     Dates: start: 20040601, end: 20040826
  4. DELAPRIL HYDROCHLORIDE (DELAPRIL HYDROCHLORIDE) [Suspect]
     Indication: HYPERTENSION
     Dosage: 30 MG (15 MG, BID), ORAL
     Route: 048
     Dates: start: 20040417, end: 20040826
  5. CANDESARTAN CILEXETIL (CANDESARTAN CILEXETIL) [Suspect]
     Indication: HYPERTENSION
     Dosage: 4 MG (4 MG, DAILY), ORAL
     Route: 048
     Dates: start: 20040710, end: 20040826
  6. METOPROLOL TARTRATE [Suspect]
     Indication: DIASTOLIC HYPERTENSION
     Dosage: 60 MG (20 MG, TID),
     Dates: start: 20040611, end: 20040710
  7. MAGNESIUM OXIDE (MAGNESIUM OXIDE) [Concomitant]
  8. PANTETHENE (PANTETHENE) [Concomitant]
  9. NITRAZEPAM [Concomitant]
  10. CLARITHROMYCIN [Concomitant]
  11. TIAPRIDE HYDROCHLORIDE (TIAPRIDE HYDROCHLORIDE) [Concomitant]
  12. AMLODIPINE BESYLATE [Concomitant]
  13. FUROSEMIDE [Concomitant]

REACTIONS (13)
  - BLOOD PRESSURE DECREASED [None]
  - BLOOD PRESSURE SYSTOLIC DECREASED [None]
  - BRADYCARDIA [None]
  - DEPRESSED LEVEL OF CONSCIOUSNESS [None]
  - FEELING COLD [None]
  - GINGIVAL HYPERTROPHY [None]
  - HYPOXIA [None]
  - NERVOUS SYSTEM DISORDER [None]
  - NEUROLEPTIC MALIGNANT SYNDROME [None]
  - PALLOR [None]
  - QUADRIPLEGIA [None]
  - SHOCK [None]
  - WEIGHT DECREASED [None]
